FAERS Safety Report 8241622-X (Version None)
Quarter: 2012Q1

REPORT INFORMATION
  Report Type: 
  Country: None (occurrence: None)
  Receive Date: 20120328
  Receipt Date: 20120321
  Transmission Date: 20120608
  Serious: Yes (Hospitalization)
  Sender: FDA-Public Use
  Company Number: BR-PFIZER INC-2012074775

PATIENT
  Age: 47 Year
  Sex: Female
  Weight: 70 kg

DRUGS (10)
  1. ZYPREXA [Concomitant]
     Indication: NERVOUS SYSTEM DISORDER
     Dosage: UNK
     Dates: start: 20070101
  2. LITHIUM [Concomitant]
     Indication: BIPOLAR DISORDER
  3. TOPIRAMATE [Concomitant]
     Indication: MIGRAINE
  4. CELEBREX [Concomitant]
     Indication: PAIN
     Dosage: 200 MG, 3X/DAY, EVERY 8 HOURS
     Route: 048
     Dates: start: 20070101
  5. CYMBALTA [Concomitant]
     Indication: BIPOLAR DISORDER
     Dosage: UNK
     Dates: start: 20050101
  6. MIDAZOLAM [Concomitant]
     Indication: SLEEP DISORDER
  7. OXYTOCIN [Concomitant]
     Indication: BONE PAIN
     Dosage: UNK
     Dates: start: 20070101
  8. CLONAZEPAM [Concomitant]
     Indication: ANXIETY
  9. LYRICA [Suspect]
     Indication: PAIN
     Dosage: 150 MG (2 CAPSULES OF 75MG), 1X/DAY
     Route: 048
     Dates: start: 20110101, end: 20120301
  10. TRAMADOL HYDROCHLORIDE [Concomitant]
     Indication: PAIN
     Dosage: UNK
     Dates: start: 20110101

REACTIONS (7)
  - HYPERHIDROSIS [None]
  - BLOOD PRESSURE DECREASED [None]
  - WITHDRAWAL SYNDROME [None]
  - CARDIAC ARREST [None]
  - ANXIETY [None]
  - FEELING ABNORMAL [None]
  - TREMOR [None]
